FAERS Safety Report 8646265 (Version 4)
Quarter: 2012Q4

REPORT INFORMATION
  Report Type: 
  Country: PT (occurrence: PT)
  Receive Date: 20120702
  Receipt Date: 20121025
  Transmission Date: 20130627
  Serious: Yes (Death, Life-Threatening, Other)
  Sender: FDA-Public Use
  Company Number: PT-B.I. PHARMACEUTICALS,INC./RIDGEFIELD-2012-EU-03351PO

PATIENT
  Age: 62 Year
  Sex: Male
  Weight: 70 kg

DRUGS (8)
  1. PRADAXA [Suspect]
     Indication: THROMBOSIS PROPHYLAXIS
     Dosage: 150 mg
     Route: 048
     Dates: start: 20120515, end: 20120530
  2. METAMIZOL [Suspect]
     Dosage: strength: 2000mg/5ml
     Route: 042
     Dates: start: 20120511, end: 20120514
  3. CO-TRIMOXAZOLE [Suspect]
     Indication: INFECTION PROPHYLAXIS
     Dosage: 2 anz
     Route: 048
     Dates: start: 20120515, end: 20120530
  4. CELECOXIB [Suspect]
     Indication: INFLAMMATION
     Dosage: 1 KA PO SOS
     Route: 048
     Dates: start: 20120515, end: 20120530
  5. INDAPAMIDE [Concomitant]
     Indication: HYPERTENSION
     Dosage: 1.5 mg
     Route: 048
  6. PARACETAMOLE [Concomitant]
     Dosage: 3000 mg
     Route: 042
     Dates: start: 20120511, end: 20120514
  7. ENOXAPARINE [Concomitant]
     Dosage: 40 mg
     Route: 058
     Dates: start: 20120511, end: 20120514
  8. TRAMADOLE [Concomitant]
     Dosage: strength: 100mg / 2ml
     Route: 042
     Dates: start: 20120511, end: 20120514

REACTIONS (11)
  - Toxic epidermal necrolysis [Fatal]
  - Stevens-Johnson syndrome [Unknown]
  - Rash [Unknown]
  - Rash erythematous [Unknown]
  - Rash generalised [Unknown]
  - Odynophagia [Unknown]
  - Pruritus [Unknown]
  - Face oedema [Unknown]
  - Ocular discomfort [Unknown]
  - Chills [Unknown]
  - Pyrexia [Unknown]
